FAERS Safety Report 23987073 (Version 1)
Quarter: 2024Q2

REPORT INFORMATION
  Report Type: Spontaneous
  Country: KR (occurrence: None)
  Receive Date: 20240618
  Receipt Date: 20240618
  Transmission Date: 20240716
  Serious: Yes (Other)
  Sender: FDA-Public Use
  Company Number: 2024A135950

PATIENT
  Age: 66 Year
  Sex: Female

DRUGS (5)
  1. LYNPARZA [Suspect]
     Active Substance: OLAPARIB
     Route: 048
     Dates: start: 20220701
  2. LYNPARZA [Suspect]
     Active Substance: OLAPARIB
     Route: 048
     Dates: start: 20220513
  3. LYNPARZA [Suspect]
     Active Substance: OLAPARIB
     Dosage: 200.0MG UNKNOWN
     Route: 048
     Dates: start: 20221209
  4. LYNPARZA [Suspect]
     Active Substance: OLAPARIB
     Dosage: 200.0MG UNKNOWN
     Route: 048
     Dates: start: 20230121, end: 20240527
  5. BEVACIZUMAB [Suspect]
     Active Substance: BEVACIZUMAB
     Dates: start: 20220421, end: 20221230

REACTIONS (7)
  - Anaemia [Unknown]
  - Haematotoxicity [Unknown]
  - Oedema [Unknown]
  - Nausea [Unknown]
  - COVID-19 [Unknown]
  - Dyspepsia [Unknown]
  - Herpes zoster [Unknown]

NARRATIVE: CASE EVENT DATE: 20220531
